FAERS Safety Report 6910623-3 (Version None)
Quarter: 2010Q3

REPORT INFORMATION
  Report Type: 
  Country: None (occurrence: None)
  Receive Date: 20100806
  Receipt Date: 20100727
  Transmission Date: 20110219
  Serious: Yes (Hospitalization)
  Sender: FDA-Public Use
  Company Number: NL-ROCHE-717747

PATIENT

DRUGS (3)
  1. CAPECITABINE [Suspect]
     Indication: GASTRIC CANCER
     Route: 065
     Dates: start: 20100607, end: 20100712
  2. EPIRUBICIN [Suspect]
     Indication: GASTRIC CANCER
     Route: 065
     Dates: start: 20100607, end: 20100712
  3. CISPLATIN [Suspect]
     Indication: GASTRIC CANCER
     Route: 065
     Dates: start: 20100607, end: 20100712

REACTIONS (5)
  - DIARRHOEA [None]
  - ELECTROLYTE IMBALANCE [None]
  - INTESTINAL PERFORATION [None]
  - THROMBOSIS [None]
  - VOMITING [None]
